FAERS Safety Report 23147180 (Version 1)
Quarter: 2023Q4

REPORT INFORMATION
  Report Type: Report from Study
  Country: US (occurrence: US)
  Receive Date: 20231106
  Receipt Date: 20231106
  Transmission Date: 20240110
  Serious: Yes (Other)
  Sender: FDA-Public Use
  Company Number: US-ACADIA PHARMACEUTICALS INC.-ACA-2023-TRF-004632

PATIENT
  Age: 23 Year
  Sex: Female

DRUGS (2)
  1. DAYBUE [Suspect]
     Active Substance: TROFINETIDE
     Dosage: 30 ML
     Route: 065
     Dates: start: 20230824
  2. DAYBUE [Suspect]
     Active Substance: TROFINETIDE
     Dosage: 40 ML
     Route: 065

REACTIONS (3)
  - Seizure [Unknown]
  - Underdose [Unknown]
  - Diarrhoea [Unknown]
